FAERS Safety Report 5667332-0 (Version None)
Quarter: 2008Q1

REPORT INFORMATION
  Report Type: 
  Country: None (occurrence: None)
  Receive Date: 20080315
  Receipt Date: 20080117
  Transmission Date: 20080703
  Serious: No
  Sender: FDA-Public Use
  Company Number: US-ABBOTT-08P-163-0434057-00

PATIENT
  Sex: Female

DRUGS (2)
  1. HUMIRA [Suspect]
     Indication: CROHN'S DISEASE
  2. ETANERCEPT [Concomitant]
     Indication: SYSTEMIC LUPUS ERYTHEMATOSUS

REACTIONS (10)
  - ABDOMINAL PAIN [None]
  - BACK PAIN [None]
  - CHILLS [None]
  - HEADACHE [None]
  - HEARING IMPAIRED [None]
  - PAIN [None]
  - PRURITUS [None]
  - PYREXIA [None]
  - RASH [None]
  - VISUAL DISTURBANCE [None]
